FAERS Safety Report 25983811 (Version 1)
Quarter: 2025Q4

REPORT INFORMATION
  Report Type: Spontaneous
  Country: US (occurrence: US)
  Receive Date: 20251031
  Receipt Date: 20251031
  Transmission Date: 20260117
  Serious: No
  Sender: GLAND PHARMA LTD
  Company Number: US-GLANDPHARMA-US-2025GLNSPO01952

PATIENT

DRUGS (2)
  1. CARBOPLATIN [Suspect]
     Active Substance: CARBOPLATIN
     Indication: Neuroendocrine tumour
     Route: 065
  2. ETOPOSIDE [Suspect]
     Active Substance: ETOPOSIDE
     Indication: Neuroendocrine tumour
     Route: 065

REACTIONS (7)
  - Anxiety [Unknown]
  - Muscular weakness [Recovering/Resolving]
  - Palpitations [Recovering/Resolving]
  - Hypersensitivity [Unknown]
  - Malaise [Unknown]
  - Full blood count decreased [Unknown]
  - Product use in unapproved indication [Unknown]
